FAERS Safety Report 4313623-5 (Version None)
Quarter: 2004Q1

REPORT INFORMATION
  Report Type: 
  Country: None (occurrence: None)
  Receive Date: 20040305
  Receipt Date: 20040223
  Transmission Date: 20041129
  Serious: Yes (Death, Hospitalization, Disabling)
  Sender: FDA-Public Use
  Company Number: 03P-163-0234177-00

PATIENT
  Age: 42 Year
  Sex: Male

DRUGS (17)
  1. NORVIR [Suspect]
     Indication: HIV INFECTION
     Dosage: PER ORAL
     Dates: start: 20030521, end: 20030905
  2. TIPRANAVIR [Concomitant]
  3. ABACAVIR SULFATE [Concomitant]
  4. TENOFOVIR [Concomitant]
  5. ENFUVIRTIDE [Concomitant]
  6. EFAVIRENZ [Concomitant]
  7. DAPSONE [Concomitant]
  8. POTASSIUM CHLORIDE [Concomitant]
  9. METOPROLOL SUCCINATE [Concomitant]
  10. SPIRONOLACTONE [Concomitant]
  11. FUROSEMIDE [Concomitant]
  12. DIGOXIN [Concomitant]
  13. ENALAPRIL MALEATE [Concomitant]
  14. VARICONAZOLE [Concomitant]
  15. STAVUDINE [Concomitant]
  16. VALCYTE [Concomitant]
  17. AZITHROMYCIN [Concomitant]

REACTIONS (4)
  - KAPOSI'S SARCOMA [None]
  - PNEUMONIA [None]
  - RENAL FAILURE [None]
  - RESPIRATORY FAILURE [None]
